FAERS Safety Report 4431411-6 (Version None)
Quarter: 2004Q3

REPORT INFORMATION
  Report Type: 
  Country: None (occurrence: None)
  Receive Date: 20040824
  Receipt Date: 20040817
  Transmission Date: 20050211
  Serious: Yes (Other)
  Sender: FDA-Public Use
  Company Number: US-GLAXOSMITHKLINE-A0522484A

PATIENT
  Sex: Male

DRUGS (5)
  1. ABACAVIR [Suspect]
     Indication: HIV INFECTION
     Dates: start: 20040721
  2. ABACAVIR [Suspect]
  3. EPIVIR [Concomitant]
  4. REYATAZ [Concomitant]
  5. VIREAD [Concomitant]

REACTIONS (4)
  - ARTHRALGIA [None]
  - BLOOD BILIRUBIN INCREASED [None]
  - HOT FLUSH [None]
  - MYALGIA [None]
